FAERS Safety Report 4372915-4 (Version None)
Quarter: 2004Q2

REPORT INFORMATION
  Report Type: 
  Country: None (occurrence: None)
  Receive Date: 20040603
  Receipt Date: 20040527
  Transmission Date: 20050107
  Serious: Yes (Life-Threatening)
  Sender: FDA-Public Use
  Company Number: THQ2004A00485

PATIENT
  Sex: Female

DRUGS (4)
  1. LANSOPRAZOLE [Suspect]
     Indication: GASTRITIS
     Dosage: 30 MG, PER ORAL
     Route: 048
     Dates: start: 20040304, end: 20040421
  2. PLAVIX [Suspect]
     Indication: ATHEROSCLEROSIS
     Dosage: 75 MG, PER ORAL
     Route: 048
     Dates: start: 20040304, end: 20040421
  3. ACETAMINOPHEN [Concomitant]
  4. DOMPERIDONE (DOMPERIDONE) [Concomitant]

REACTIONS (1)
  - NEUTROPENIC SEPSIS [None]
